FAERS Safety Report 19646632 (Version 1)
Quarter: 2021Q3

REPORT INFORMATION
  Report Type: Spontaneous
  Country: AU (occurrence: AU)
  Receive Date: 20210802
  Receipt Date: 20210802
  Transmission Date: 20211014
  Serious: Yes (Death)
  Sender: FDA-Public Use
  Company Number: AU-TASMAN PHARMA, INC.-2021TSM00061

PATIENT
  Sex: Female

DRUGS (6)
  1. CLOZAPINE. [Suspect]
     Active Substance: CLOZAPINE
     Dosage: 25 MG
     Dates: start: 20200217, end: 20200220
  2. CLOZAPINE. [Suspect]
     Active Substance: CLOZAPINE
     Dosage: 400 MG
     Dates: start: 20200228, end: 20200305
  3. CLOZAPINE. [Suspect]
     Active Substance: CLOZAPINE
     Dosage: 425 MG
     Dates: start: 20200115, end: 20200209
  4. CLOZAPINE. [Suspect]
     Active Substance: CLOZAPINE
     Dosage: 425 MG
     Dates: start: 20200306
  5. CLOZAPINE. [Suspect]
     Active Substance: CLOZAPINE
     Dosage: 425 MG
     Dates: start: 20200210, end: 20200216
  6. CLOZAPINE. [Suspect]
     Active Substance: CLOZAPINE
     Dosage: 125 MG
     Dates: start: 20200221, end: 20200227

REACTIONS (2)
  - Unevaluable event [Recovered/Resolved]
  - Death [Fatal]

NARRATIVE: CASE EVENT DATE: 20200212
